FAERS Safety Report 5243690-6 (Version None)
Quarter: 2007Q1

REPORT INFORMATION
  Report Type: 
  Country: None (occurrence: None)
  Receive Date: 20070220
  Receipt Date: 20070220
  Transmission Date: 20070707
  Serious: No
  Sender: FDA-Public Use
  Company Number: None

PATIENT
  Age: 54 Year
  Sex: Male
  Weight: 82.1 kg

DRUGS (1)
  1. WARFARIN SODIUM [Suspect]
     Indication: DEEP VEIN THROMBOSIS
     Dosage: WARFARIN DOSE: 2MG DAILY EXCE PO
     Route: 048

REACTIONS (2)
  - ALCOHOLISM [None]
  - INTERNATIONAL NORMALISED RATIO INCREASED [None]
